FAERS Safety Report 8824374 (Version 1)
Quarter: 2012Q4

REPORT INFORMATION
  Report Type: 
  Country: US (occurrence: US)
  Receive Date: 20121004
  Receipt Date: 20121004
  Transmission Date: 20130627
  Serious: No
  Sender: FDA-Public Use
  Company Number: US-VERTEX PHARMACEUTICAL INC.-2012-020717

PATIENT
  Age: 54 Year
  Sex: Female
  Weight: 72 kg

DRUGS (10)
  1. INCIVEK [Suspect]
     Indication: HEPATITIS C
     Dosage: 750 mg, tid
     Route: 048
     Dates: start: 20120901
  2. RIBAVIRIN [Concomitant]
     Indication: HEPATITIS C
     Dosage: 1000 mg, qd
     Route: 048
     Dates: start: 20120901
  3. PEGASYS [Concomitant]
     Indication: HEPATITIS C
     Dosage: 180 UNK, UNK
     Route: 058
     Dates: start: 20120901
  4. AMBIEN [Concomitant]
     Dosage: UNK UNK, prn
     Route: 048
  5. OMEPRAZOLE [Concomitant]
     Indication: GASTROOESOPHAGEAL REFLUX DISEASE
     Dosage: 20 mg, bid
     Route: 048
  6. ADIPEX                             /00131701/ [Concomitant]
     Dosage: 1 DF, qd
     Route: 048
  7. VALIUM                             /00017001/ [Concomitant]
     Indication: ANXIETY
     Dosage: 5 mg, bid
     Route: 048
  8. GEODON                             /01487002/ [Concomitant]
     Indication: BIPOLAR DISORDER
     Dosage: 80 mg, qd
     Route: 048
  9. NEURONTIN [Concomitant]
     Indication: NEURALGIA
     Dosage: 600 mg, qd
     Route: 048
  10. ZOLOFT [Concomitant]
     Indication: DEPRESSION
     Dosage: 200 mg, qd
     Route: 048

REACTIONS (1)
  - Inappropriate schedule of drug administration [Recovered/Resolved]
